FAERS Safety Report 24559004 (Version 1)
Quarter: 2024Q4

REPORT INFORMATION
  Report Type: Spontaneous
  Country: US (occurrence: US)
  Receive Date: 20241029
  Receipt Date: 20241029
  Transmission Date: 20250115
  Serious: No
  Sender: ELI LILLY AND COMPANY
  Company Number: US-ELI_LILLY_AND_COMPANY-US202410018527

PATIENT
  Age: 53 Year
  Sex: Female

DRUGS (1)
  1. TALTZ [Suspect]
     Active Substance: IXEKIZUMAB
     Indication: Spondylolisthesis
     Dosage: 160 MG, OTHER (LOADING DOSE)
     Route: 058
     Dates: start: 202409

REACTIONS (2)
  - Off label use [Unknown]
  - Rash [Unknown]
